FAERS Safety Report 7283289-3 (Version None)
Quarter: 2011Q1

REPORT INFORMATION
  Report Type: 
  Country: None (occurrence: None)
  Receive Date: 20110209
  Receipt Date: 20110126
  Transmission Date: 20110831
  Serious: Yes (Hospitalization)
  Sender: FDA-Public Use
  Company Number: GB-CELGENEUS-167-C5013-10112786

PATIENT
  Sex: Male
  Weight: 78 kg

DRUGS (6)
  1. CC-5013\PLACEBO [Suspect]
     Indication: PROSTATE CANCER
     Route: 048
     Dates: start: 20100826
  2. PREDNISONE [Suspect]
     Indication: PROSTATE CANCER
     Route: 065
     Dates: start: 20100825
  3. PREDNISONE [Suspect]
     Route: 065
     Dates: start: 20101117
  4. DOCETAXEL [Suspect]
     Route: 065
     Dates: start: 20101118
  5. DOCETAXEL [Suspect]
     Indication: PROSTATE CANCER
     Route: 065
     Dates: start: 20100826
  6. CC-5013\PLACEBO [Suspect]
     Route: 048
     Dates: start: 20101118

REACTIONS (1)
  - PULMONARY EMBOLISM [None]
